FAERS Safety Report 5407474-8 (Version None)
Quarter: 2007Q3

REPORT INFORMATION
  Report Type: 
  Country: None (occurrence: None)
  Receive Date: 20070807
  Receipt Date: 20070726
  Transmission Date: 20080115
  Serious: Yes (Hospitalization)
  Sender: FDA-Public Use
  Company Number: US-ELI_LILLY_AND_COMPANY-US200707006544

PATIENT
  Age: 25 Year
  Sex: Male

DRUGS (4)
  1. CYMBALTA [Suspect]
     Indication: DIABETIC NEUROPATHY
     Dosage: UNK, UNK
     Dates: start: 20060701
  2. LYRICA [Concomitant]
     Indication: DIABETIC NEUROPATHY
  3. ANTIHYPERTENSIVES [Concomitant]
  4. SUBOXONE [Concomitant]

REACTIONS (5)
  - BLOOD GLUCOSE ABNORMAL [None]
  - HOSPITALISATION [None]
  - HYPERHIDROSIS [None]
  - NIGHT SWEATS [None]
  - TEMPERATURE REGULATION DISORDER [None]
